FAERS Safety Report 4302355-5 (Version None)
Quarter: 2004Q1

REPORT INFORMATION
  Report Type: 
  Country: None (occurrence: None)
  Receive Date: 20040220
  Receipt Date: 20040122
  Transmission Date: 20041129
  Serious: Yes (Hospitalization)
  Sender: FDA-Public Use
  Company Number: D01200400206

PATIENT
  Age: 50 Year
  Sex: Female
  Weight: 60 kg

DRUGS (10)
  1. CISPLATIN [Suspect]
     Indication: SMALL CELL LUNG CANCER EXTENSIVE STAGE
     Dosage: 80 MG/M CONT - INTRAVENOUS NOS
     Route: 042
     Dates: start: 20040119, end: 20040119
  2. ETOPOSIDE [Suspect]
     Indication: SMALL CELL LUNG CANCER EXTENSIVE STAGE
     Dosage: 120 MG/M2 GIVEN ON DAYS 1, 2 AND 3, IN A 30-MINUTE INFUSION - INTRAVENOUS NOS
     Route: 042
     Dates: start: 20040119, end: 20040121
  3. KETOPROFEN [Concomitant]
  4. TRAMADOL HYDROCHLORIDE [Concomitant]
  5. ORNITHINE ASPARTATE [Concomitant]
  6. HYDROCORTISONE [Concomitant]
  7. CLEMASTINE [Concomitant]
  8. CALCIUM LACTOGLUCONATE [Concomitant]
  9. MIDAZOLAM HYDROCHLORIDE [Concomitant]
  10. PREDNISONE ACETATE [Concomitant]

REACTIONS (2)
  - CHEST PAIN [None]
  - RESPIRATORY RATE INCREASED [None]
